FAERS Safety Report 7506333-4 (Version None)
Quarter: 2011Q2

REPORT INFORMATION
  Report Type: 
  Country: None (occurrence: None)
  Receive Date: 20110526
  Receipt Date: 20110124
  Transmission Date: 20111010
  Serious: No
  Sender: FDA-Public Use
  Company Number: US-ABBOTT-11P-163-0700703-00

PATIENT
  Sex: Female
  Weight: 88.53 kg

DRUGS (5)
  1. ZEMPLAR [Suspect]
     Indication: HYPERPARATHYROIDISM
     Dates: start: 20101221
  2. ACTOS [Concomitant]
     Indication: DIABETES MELLITUS
  3. GEMFIBROZIL [Concomitant]
     Indication: BLOOD CHOLESTEROL INCREASED
  4. LEVOTHYROXINE SODIUM [Concomitant]
     Indication: HYPOTHYROIDISM
  5. DIOVAN [Concomitant]
     Indication: HYPERTENSION

REACTIONS (1)
  - DIARRHOEA [None]
